FAERS Safety Report 8027218-3 (Version None)
Quarter: 2012Q1

REPORT INFORMATION
  Report Type: 
  Country: None (occurrence: None)
  Receive Date: 20120104
  Receipt Date: 20111220
  Transmission Date: 20120608
  Serious: Yes (Death, Hospitalization)
  Sender: FDA-Public Use
  Company Number: TCI2011A04297

PATIENT
  Age: 57 Year
  Sex: Male

DRUGS (17)
  1. CALBLOCK (AZELNIDIPINE) [Concomitant]
  2. BEPRICOR (BEPRIDIL HYDROCHLORIDE MONOHYDRATE) [Concomitant]
  3. MAGLAX (MAGNESIUM OXIDE) [Concomitant]
  4. WARFARIN (WARFARIN POTASSIUM) [Concomitant]
  5. DILTIAZEM HYDROCHLORIDE [Concomitant]
  6. LIVALO [Concomitant]
  7. ACTOS [Concomitant]
  8. ASPIRIN [Concomitant]
  9. PURSENNID (SENNOSIDE A+B) [Concomitant]
  10. AMOBAN (ZOPICLONE) [Concomitant]
  11. FLUOROURACIL [Concomitant]
  12. LANSOPRAZOLE [Suspect]
     Indication: GASTROINTESTINAL HAEMORRHAGE
     Route: 048
     Dates: end: 20110727
  13. PERINDOPRIL ERBUMINE [Concomitant]
  14. LEVOLEUCOVORIN CALCIUM [Concomitant]
  15. AMARYL [Concomitant]
  16. METFORMIN HYDROCHLORIDE [Concomitant]
  17. OXYCONTIN [Concomitant]

REACTIONS (2)
  - FAECES PALE [None]
  - TUMOUR HAEMORRHAGE [None]
